FAERS Safety Report 25764204 (Version 1)
Quarter: 2025Q3

REPORT INFORMATION
  Report Type: Spontaneous
  Country: US (occurrence: US)
  Receive Date: 20250905
  Receipt Date: 20250905
  Transmission Date: 20251021
  Serious: No
  Sender: DOMPE FARMACEUTICI
  Company Number: US-FARMAPROD-202412-4198

PATIENT
  Sex: Female

DRUGS (4)
  1. OXERVATE [Suspect]
     Active Substance: CENEGERMIN-BKBJ
     Indication: Neurotrophic keratopathy
     Route: 047
     Dates: start: 20241203
  2. LATANOPROST [Concomitant]
     Active Substance: LATANOPROST
  3. MOXIFLOXACIN [Concomitant]
     Active Substance: MOXIFLOXACIN
  4. BACITRACIN [Concomitant]
     Active Substance: BACITRACIN

REACTIONS (5)
  - Ocular hyperaemia [Unknown]
  - Apraxia [Unknown]
  - Eyelid ptosis [Not Recovered/Not Resolved]
  - Administration site pain [Unknown]
  - Persistent corneal epithelial defect [Unknown]
